FAERS Safety Report 20934421 (Version 1)
Quarter: 2022Q2

REPORT INFORMATION
  Report Type: Spontaneous
  Country: US (occurrence: None)
  Receive Date: 20220607
  Receipt Date: 20220607
  Transmission Date: 20220721
  Serious: Yes (Hospitalization)
  Sender: FDA-Public Use
  Company Number: None

PATIENT
  Age: 66 Year
  Sex: Male

DRUGS (21)
  1. OPSUMIT [Suspect]
     Active Substance: MACITENTAN
     Indication: Pulmonary arterial hypertension
     Dosage: FREQUENCY : DAILY;?
     Route: 048
     Dates: start: 20171003
  2. SILDENAFIL [Suspect]
     Active Substance: SILDENAFIL
  3. PRADAXA [Concomitant]
     Active Substance: DABIGATRAN ETEXILATE MESYLATE
  4. PERCOCET [Concomitant]
     Active Substance: ACETAMINOPHEN\OXYCODONE HYDROCHLORIDE
  5. MORPHINE [Concomitant]
     Active Substance: MORPHINE
  6. FINASTERIDE [Concomitant]
     Active Substance: FINASTERIDE
  7. MAGNESIUM CHLORIDE [Concomitant]
     Active Substance: MAGNESIUM CHLORIDE
  8. HUMULIN R [Concomitant]
     Active Substance: INSULIN HUMAN
  9. HUMULIN N [Concomitant]
     Active Substance: INSULIN HUMAN
  10. NARCAN [Concomitant]
     Active Substance: NALOXONE HYDROCHLORIDE
  11. COLACE [Concomitant]
     Active Substance: DOCUSATE SODIUM
  12. SENOKOT [Concomitant]
     Active Substance: SENNOSIDES
  13. ATORVASTATIN [Concomitant]
     Active Substance: ATORVASTATIN
  14. PANTOPRAZOLE [Concomitant]
     Active Substance: PANTOPRAZOLE
  15. METFORMIN [Concomitant]
     Active Substance: METFORMIN HYDROCHLORIDE
  16. SERTRALINE [Concomitant]
     Active Substance: SERTRALINE HYDROCHLORIDE
  17. DULOXETINE [Concomitant]
     Active Substance: DULOXETINE
  18. TYLENOL [Concomitant]
     Active Substance: ACETAMINOPHEN
  19. ONDANSETRON [Concomitant]
     Active Substance: ONDANSETRON
  20. VALBENAZINE [Concomitant]
     Active Substance: VALBENAZINE
  21. VENOFER [Concomitant]
     Active Substance: IRON SUCROSE

REACTIONS (2)
  - Ankle fracture [None]
  - Fall [None]

NARRATIVE: CASE EVENT DATE: 20220519
